FAERS Safety Report 8997757 (Version 1)
Quarter: 2013Q1

REPORT INFORMATION
  Report Type: Spontaneous
  Country: IT (occurrence: IT)
  Receive Date: 20130104
  Receipt Date: 20130104
  Transmission Date: 20140127
  Serious: Yes (Hospitalization)
  Sender: FDA-Public Use
  Company Number: PHHY2012IT121840

PATIENT
  Age: 86 Year
  Sex: Male

DRUGS (7)
  1. SERTRALINE [Suspect]
     Indication: DEPRESSION
     Dosage: 25 MG, UNK
     Route: 048
     Dates: start: 20121215, end: 20121227
  2. AMIODAR [Suspect]
     Dosage: 1 DF, UNK
     Route: 048
     Dates: start: 20120101, end: 20121227
  3. COUMADIN [Suspect]
     Dosage: 1 DF, UNK
     Route: 048
     Dates: start: 20120101, end: 20121227
  4. LASIX [Concomitant]
  5. DIAMOX [Concomitant]
  6. LUVION [Concomitant]
  7. LEVOCARNITINE [Concomitant]

REACTIONS (2)
  - International normalised ratio increased [Recovered/Resolved]
  - Haematuria [Recovered/Resolved]
